FAERS Safety Report 4509135-6 (Version None)
Quarter: 2004Q4

REPORT INFORMATION
  Report Type: 
  Country: None (occurrence: None)
  Receive Date: 20041025
  Receipt Date: 20040504
  Transmission Date: 20050328
  Serious: Yes (Other)
  Sender: FDA-Public Use
  Company Number: NSADSS2003016814

PATIENT
  Age: 77 Year
  Sex: Female
  Weight: 90.7194 kg

DRUGS (15)
  1. REMICADE [Suspect]
     Indication: RHEUMATOID ARTHRITIS
     Dosage: SEE IMAGE
     Route: 041
     Dates: start: 20030423, end: 20030423
  2. REMICADE [Suspect]
     Indication: RHEUMATOID ARTHRITIS
     Dosage: SEE IMAGE
     Route: 041
     Dates: start: 20020605
  3. REMICADE [Suspect]
     Indication: RHEUMATOID ARTHRITIS
     Dosage: SEE IMAGE
     Route: 041
     Dates: start: 20020620
  4. REMICADE [Suspect]
     Indication: RHEUMATOID ARTHRITIS
     Dosage: SEE IMAGE
     Route: 041
     Dates: start: 20020701
  5. REMICADE [Suspect]
     Indication: RHEUMATOID ARTHRITIS
     Dosage: SEE IMAGE
     Route: 041
     Dates: start: 20020901
  6. FOSAMAX [Concomitant]
  7. METHOTREXATE [Concomitant]
  8. PREDNISONE [Concomitant]
  9. FOLIC ACID [Concomitant]
  10. VITAMIN C (ASCORBIC ACID) [Concomitant]
  11. VITAMIN E [Concomitant]
  12. CALTRATE D (LEKOVIT CA) [Concomitant]
  13. PERCOCET [Concomitant]
  14. TEMAZEPAM [Concomitant]
  15. LASIX [Concomitant]

REACTIONS (4)
  - CONDITION AGGRAVATED [None]
  - DRUG INEFFECTIVE [None]
  - SLEEP DISORDER [None]
  - SYSTEMIC LUPUS ERYTHEMATOSUS [None]
